FAERS Safety Report 26217573 (Version 1)
Quarter: 2025Q4

REPORT INFORMATION
  Report Type: Spontaneous
  Country: EU (occurrence: EU)
  Receive Date: 20251231
  Receipt Date: 20251231
  Transmission Date: 20260118
  Serious: Yes (Other)
  Sender: TORRENT PHARMA INC.
  Company Number: None

PATIENT
  Sex: Female

DRUGS (9)
  1. PANTOPRAZOLE [Suspect]
     Active Substance: PANTOPRAZOLE
     Indication: Product used for unknown indication
     Dosage: 20 MG AS NEEDED FROM 5/2024 TO 02/2025
     Route: 064
  2. ACETAMINOPHEN [Suspect]
     Active Substance: ACETAMINOPHEN
     Indication: Product used for unknown indication
     Dosage: 3000 MG/D BECAUSE OF AN ACUTE MIGRAINE ATTACK AT GW 5, OTHERWISE AS NEEDED, FROM 05/2024 TO 02/2025
     Route: 064
  3. GAVISCON [Suspect]
     Active Substance: ALUMINUM HYDROXIDE\MAGNESIUM CARBONATE
     Indication: Product used for unknown indication
     Dosage: AS NEEDED, ALMOST DAILY,FORM 05/2024 TO 02/2025
     Route: 064
  4. DICLOFENAC [Concomitant]
     Active Substance: DICLOFENAC
     Indication: Product used for unknown indication
     Dosage: 150 MG PER DAY FROM 06/2024 TO 06/2024 FOR ONE DAY
     Route: 064
  5. IBUPROFEN [Concomitant]
     Active Substance: IBUPROFEN
     Indication: Product used for unknown indication
     Dosage: 2400 MG/D BECAUSE OF AN ACUTE MIGRAINE ATTACK AT GW 5, OTHERWISE 600MG AS NEEDED
     Route: 064
  6. novalgin [Concomitant]
     Indication: Product used for unknown indication
     Dosage: 1000 MG PER DAY FROM 06/2024 TO 06/2024 FOR ONE DAY
     Route: 064
  7. ortoton [Concomitant]
     Indication: Product used for unknown indication
     Dosage: 500 MG PER DAY FROM 06/2024 TO 06/2024 FOR ONE DAY
     Route: 064
  8. PREDNISOLONE [Concomitant]
     Active Substance: PREDNISOLONE
     Indication: Product used for unknown indication
     Dosage: 200 MG PER DAY FROM 06/2024 TO 06/2024 FOR ONE DAY
     Route: 064
  9. ZOLMITRIPTAN [Concomitant]
     Active Substance: ZOLMITRIPTAN
     Indication: Product used for unknown indication
     Dosage: 5 MG PER DAY FROM 06/2024 TO 06/2024 FOR ONE DAY
     Route: 064

REACTIONS (2)
  - Small for dates baby [Not Recovered/Not Resolved]
  - Foetal exposure during pregnancy [Unknown]

NARRATIVE: CASE EVENT DATE: 20250201
